FAERS Safety Report 4438871-5 (Version None)
Quarter: 2004Q3

REPORT INFORMATION
  Report Type: 
  Country: None (occurrence: None)
  Receive Date: 20040830
  Receipt Date: 20040818
  Transmission Date: 20050211
  Serious: Yes (Death)
  Sender: FDA-Public Use
  Company Number: KII-2002-0001784

PATIENT
  Sex: Male

DRUGS (1)
  1. UNIPHYL [Suspect]

REACTIONS (1)
  - DEATH [None]
